FAERS Safety Report 9883234 (Version 1)
Quarter: 2014Q1

REPORT INFORMATION
  Report Type: Spontaneous
  Country: US (occurrence: US)
  Receive Date: 20140209
  Receipt Date: 20140209
  Transmission Date: 20141002
  Serious: Yes (Other)
  Sender: FDA-Public Use
  Company Number: PHEH2014US002578

PATIENT
  Sex: Female

DRUGS (3)
  1. DIOVAN [Suspect]
     Dosage: 160 MG, UNK
     Dates: start: 2010
  2. COREG [Concomitant]
     Dosage: UNK UKN, UNK
  3. BABY ASPIRIN [Concomitant]
     Dosage: UNK UKN, UNK

REACTIONS (2)
  - Cardiac failure [Unknown]
  - Influenza [Unknown]
